FAERS Safety Report 8107034-4 (Version None)
Quarter: 2012Q1

REPORT INFORMATION
  Report Type: 
  Country: None (occurrence: None)
  Receive Date: 20120202
  Receipt Date: 20120131
  Transmission Date: 20120608
  Serious: Yes (Other)
  Sender: FDA-Public Use
  Company Number: US-BAYER-2012-010190

PATIENT
  Age: 82 Year
  Sex: Male
  Weight: 69 kg

DRUGS (6)
  1. CENTRUM [Concomitant]
  2. KEFLEX [Concomitant]
  3. SYNTHROID [Concomitant]
  4. ALEVE (CAPLET) [Suspect]
     Indication: BACK PAIN
     Dosage: UNK
     Route: 048
     Dates: start: 20110101, end: 20120130
  5. VITAMIN D [Concomitant]
  6. VITAMIN B-12 [Concomitant]

REACTIONS (1)
  - RECTAL HAEMORRHAGE [None]
